FAERS Safety Report 12405010 (Version 2)
Quarter: 2016Q2

REPORT INFORMATION
  Report Type: Spontaneous
  Country: DE (occurrence: DE)
  Receive Date: 20160525
  Receipt Date: 20160617
  Transmission Date: 20160815
  Serious: Yes (Hospitalization)
  Sender: FDA-Public Use
  Company Number: DE-SA-2016SA097087

PATIENT
  Age: 34 Year
  Sex: Female
  Weight: 50 kg

DRUGS (10)
  1. LEMTRADA [Suspect]
     Active Substance: ALEMTUZUMAB
     Indication: RELAPSING-REMITTING MULTIPLE SCLEROSIS
     Route: 041
     Dates: start: 20151116, end: 20151120
  2. ACIMETHIN [Concomitant]
     Dates: start: 20160131
  3. MICTONORM [Concomitant]
     Active Substance: PROPIVERINE HYDROCHLORIDE
     Indication: URINARY INCONTINENCE
     Route: 048
     Dates: start: 20150723
  4. VALSARTAN. [Concomitant]
     Active Substance: VALSARTAN
     Indication: HYPERTENSION
     Route: 048
     Dates: start: 20150723
  5. LIORESAL [Concomitant]
     Active Substance: BACLOFEN
     Dates: start: 20160131
  6. VITAMIN D [Concomitant]
     Active Substance: CHOLECALCIFEROL
     Indication: VITAMIN D DEFICIENCY
     Dates: start: 20160131
  7. DEKRISTOL [Concomitant]
     Active Substance: CHOLECALCIFEROL
     Indication: VITAMIN D DEFICIENCY
     Route: 048
     Dates: start: 20150727
  8. BACLOFEN. [Concomitant]
     Active Substance: BACLOFEN
     Indication: MUSCLE RELAXANT THERAPY
     Route: 048
     Dates: start: 20150723
  9. FAMPYRA [Concomitant]
     Active Substance: DALFAMPRIDINE
     Route: 048
     Dates: start: 20150723
  10. VALSARTAN. [Concomitant]
     Active Substance: VALSARTAN
     Indication: HYPERTENSION
     Dates: start: 20160131

REACTIONS (8)
  - Gait disturbance [Recovering/Resolving]
  - Urinary tract infection [Unknown]
  - Muscle spasticity [Recovering/Resolving]
  - Iron deficiency anaemia [Recovering/Resolving]
  - Multiple sclerosis relapse [Unknown]
  - Paraesthesia [Not Recovered/Not Resolved]
  - Hypoaesthesia [Unknown]
  - Multiple sclerosis relapse [Recovering/Resolving]

NARRATIVE: CASE EVENT DATE: 20160114
